FAERS Safety Report 9096880 (Version 1)
Quarter: 2013Q1

REPORT INFORMATION
  Report Type: Spontaneous
  Country: US (occurrence: US)
  Receive Date: 20130211
  Receipt Date: 20130211
  Transmission Date: 20140127
  Serious: Yes (Hospitalization, Other)
  Sender: FDA-Public Use
  Company Number: US-ELI_LILLY_AND_COMPANY-US201302000183

PATIENT
  Sex: Male

DRUGS (9)
  1. CYMBALTA [Suspect]
     Indication: DEPRESSION
     Dosage: 60 MG, QD
  2. CYMBALTA [Suspect]
     Dosage: 30 MG, QD
  3. ASPIRIN [Concomitant]
     Dosage: 80 MG, QD
  4. LISINOPRIL [Concomitant]
     Dosage: 10 MG, QD
  5. METOPROLOL TARTRATE [Concomitant]
     Dosage: 75 MG, BID
  6. MELOXICAM [Concomitant]
     Dosage: 15 MG, QD
  7. AMLODIPINE [Concomitant]
     Dosage: 10 MG, QD
  8. SIMVASTATIN [Concomitant]
     Dosage: 20 MG, QD
  9. PANTOPRAZOLE [Concomitant]
     Dosage: 40 MG, QD

REACTIONS (7)
  - Arterial occlusive disease [Unknown]
  - Chest pain [Unknown]
  - Drug withdrawal syndrome [Unknown]
  - Paraesthesia [Recovered/Resolved]
  - Tinnitus [Recovered/Resolved]
  - Neck injury [Unknown]
  - Back pain [Unknown]
